FAERS Safety Report 22209416 (Version 1)
Quarter: 2023Q2

REPORT INFORMATION
  Report Type: Spontaneous
  Country: PL (occurrence: PL)
  Receive Date: 20230414
  Receipt Date: 20230414
  Transmission Date: 20230722
  Serious: Yes (Hospitalization, Other)
  Sender: FDA-Public Use
  Company Number: PL-BRISTOL-MYERS SQUIBB COMPANY-2023-053099

PATIENT
  Age: 61 Year
  Sex: Male
  Weight: 94 kg

DRUGS (14)
  1. OPDIVO [Suspect]
     Active Substance: NIVOLUMAB
     Indication: Metastatic malignant melanoma
     Dates: start: 20220909
  2. METHIMAZOLE [Concomitant]
     Active Substance: METHIMAZOLE
     Indication: Product used for unknown indication
  3. CEFUROXIME SODIUM [Concomitant]
     Active Substance: CEFUROXIME SODIUM
     Indication: Product used for unknown indication
  4. PREDNISONE [Concomitant]
     Active Substance: PREDNISONE
     Indication: Product used for unknown indication
     Dosage: 80MG / DAY FROM JULY 12, 2022 (AFTER GIVING BLOOD FOR CORTISOL LEVELS)
     Dates: start: 20220712
  5. HYDROCORTISONE [Concomitant]
     Active Substance: HYDROCORTISONE
     Indication: Product used for unknown indication
     Dosage: DOSE-20MG-10MG 5 FOR 2 WEEKS WAS RECOMMENDED, IN CASE OF INFECTION 30-20-10MG
     Dates: start: 20220718
  6. METHIMAZOLE [Concomitant]
     Active Substance: METHIMAZOLE
     Indication: Product used for unknown indication
  7. SOLU-MEDROL [Concomitant]
     Active Substance: METHYLPREDNISOLONE SODIUM SUCCINATE
     Indication: Product used for unknown indication
     Route: 042
     Dates: start: 20220922
  8. DEXAMETHASONE [Concomitant]
     Active Substance: DEXAMETHASONE
     Indication: Product used for unknown indication
     Dosage: DOSE-16-0-12 MG TBL P.O., PLEASE REDUCE DOSE BY 4 MG (1TBL) EVERY 4-5 DAYS
     Route: 048
  9. BISEPTOL [Concomitant]
     Active Substance: SULFAMETHOXAZOLE\TRIMETHOPRIM
     Indication: Product used for unknown indication
     Dosage: DOSE- 960 MG 1X1 TBL P.O.
     Route: 048
  10. FLUCOFAST [Concomitant]
     Indication: Product used for unknown indication
     Dosage: DOSE-100 MG 1X1 TBL P.O.
     Route: 048
  11. ESOMEPRAZOLE MAGNESIUM [Concomitant]
     Active Substance: ESOMEPRAZOLE MAGNESIUM
     Indication: Product used for unknown indication
     Dosage: DOSE-20 MG 1X1 TBL P.O. ON AN EMPTY STOMACH
     Route: 048
  12. ORNITHINE ASPARTATE [Concomitant]
     Active Substance: ORNITHINE ASPARTATE
     Indication: Product used for unknown indication
     Dosage: DOSE-3000 2X1 SACHET P.O
     Route: 048
  13. INSULIN HUMAN [Concomitant]
     Active Substance: INSULIN HUMAN
     Indication: Steroid diabetes
     Dosage: DOSE- 200MG% 4-8 UNITS S.C
     Route: 058
  14. EUTHYROX [Concomitant]
     Active Substance: LEVOTHYROXINE SODIUM
     Indication: Product used for unknown indication

REACTIONS (5)
  - Urine analysis abnormal [Unknown]
  - Adrenal insufficiency [Unknown]
  - Rash pruritic [Unknown]
  - Hepatotoxicity [Unknown]
  - Transaminases increased [Unknown]

NARRATIVE: CASE EVENT DATE: 20220921
